FAERS Safety Report 9414625 (Version 1)
Quarter: 2013Q3

REPORT INFORMATION
  Report Type: Spontaneous
  Country: CO (occurrence: CO)
  Receive Date: 20130723
  Receipt Date: 20130723
  Transmission Date: 20140515
  Serious: Yes (Hospitalization, Other)
  Sender: FDA-Public Use
  Company Number: CO-PFIZER INC-2013214507

PATIENT
  Age: 64 Year
  Sex: Male

DRUGS (1)
  1. CARDURAN [Suspect]
     Indication: PROPHYLAXIS
     Dosage: 4 MG, 1X/DAY
     Route: 048
     Dates: start: 2012

REACTIONS (3)
  - Myocardial infarction [Recovered/Resolved]
  - Nephrolithiasis [Recovered/Resolved]
  - Aortic aneurysm [Recovering/Resolving]
